FAERS Safety Report 9006062 (Version 1)
Quarter: 2013Q1

REPORT INFORMATION
  Report Type: Spontaneous
  Country: BR (occurrence: BR)
  Receive Date: 20130109
  Receipt Date: 20130109
  Transmission Date: 20140127
  Serious: Yes (Other)
  Sender: FDA-Public Use
  Company Number: PHHY2013BR001744

PATIENT
  Age: 57 Year
  Sex: Female

DRUGS (1)
  1. DIOVAN HCT [Suspect]
     Indication: HYPERTENSION
     Dosage: 1 DF,?1 TABLET (VALSARTAN 160MG AND HYDROCHLOROTIAZIDE 12.5MG) A DAY
     Route: 048

REACTIONS (2)
  - Cataract [Recovering/Resolving]
  - Drug dispensing error [Unknown]
